FAERS Safety Report 5131661-X (Version None)
Quarter: 2006Q4

REPORT INFORMATION
  Report Type: 
  Country: None (occurrence: None)
  Receive Date: 20061020
  Receipt Date: 20061010
  Transmission Date: 20070319
  Serious: Yes (Disabling)
  Sender: FDA-Public Use
  Company Number: DE-BRISTOL-MYERS SQUIBB COMPANY-13539358

PATIENT
  Age: 30 Year
  Sex: Female

DRUGS (1)
  1. VOLON-A INJ 40 MG [Suspect]

REACTIONS (2)
  - INJECTION SITE ATROPHY [None]
  - INJECTION SITE HAEMORRHAGE [None]
